FAERS Safety Report 14604471 (Version 1)
Quarter: 2018Q1

REPORT INFORMATION
  Report Type: Spontaneous
  Country: US (occurrence: US)
  Receive Date: 20180306
  Receipt Date: 20180306
  Transmission Date: 20180509
  Serious: No
  Sender: FDA-Public Use
  Company Number: US-BAYER-2018-043136

PATIENT
  Sex: Male

DRUGS (2)
  1. ALEVE [Suspect]
     Active Substance: NAPROXEN SODIUM
     Route: 065
  2. ALEVE TENS DEVICE DIRECT THERAPY UNIT [Concomitant]
     Active Substance: DEVICE
     Indication: BACK PAIN

REACTIONS (1)
  - Abdominal discomfort [Unknown]
